FAERS Safety Report 9371600 (Version 2)
Quarter: 2014Q2

REPORT INFORMATION
  Report Type: Report from Study
  Country: IN (occurrence: IN)
  Receive Date: 20130627
  Receipt Date: 20140530
  Transmission Date: 20141212
  Serious: Yes (Other)
  Sender: FDA-Public Use
  Company Number: PHHY2013IN064551

PATIENT
  Age: 45 Year
  Sex: Female

DRUGS (5)
  1. TASIGNA [Suspect]
     Indication: CHRONIC MYELOID LEUKAEMIA
     Dosage: 400 MG, BID
     Route: 048
     Dates: start: 201304
  2. TASIGNA [Suspect]
     Dosage: 300 MG, BID
     Route: 048
  3. TELMA [Concomitant]
     Indication: HYPERTENSION
     Route: 048
  4. GLYCIPHAGE [Concomitant]
     Indication: DIABETES MELLITUS
     Route: 048
  5. DERIPHYLLIN [Concomitant]
     Indication: ASTHMA
     Dosage: 300 MG, UNK
     Route: 048

REACTIONS (3)
  - Pain [Not Recovered/Not Resolved]
  - Asthenia [Not Recovered/Not Resolved]
  - White blood cell count increased [Unknown]
